FAERS Safety Report 15689931 (Version 1)
Quarter: 2018Q4

REPORT INFORMATION
  Report Type: Spontaneous
  Country: CH (occurrence: CH)
  Receive Date: 20181205
  Receipt Date: 20181205
  Transmission Date: 20190205
  Serious: Yes (Hospitalization)
  Sender: FDA-Public Use
  Company Number: CH-BAYER-2018-219836

PATIENT
  Age: 56 Year
  Sex: Male

DRUGS (3)
  1. ASPIRIN CARDIO 100 MG [Suspect]
     Active Substance: ASPIRIN
     Dosage: 100 MG, UNK
     Route: 048
     Dates: end: 20181003
  2. TRIATEC [RAMIPRIL] [Concomitant]
     Dosage: 1.25 MG, UNK
     Route: 048
  3. CRESTOR [Concomitant]
     Active Substance: ROSUVASTATIN CALCIUM
     Dosage: 20 MG, UNK
     Route: 048

REACTIONS (3)
  - Gait spastic [Recovering/Resolving]
  - Dysarthria [Recovering/Resolving]
  - Cerebral haemorrhage [Recovering/Resolving]

NARRATIVE: CASE EVENT DATE: 20181003
